FAERS Safety Report 8076184-3 (Version None)
Quarter: 2012Q1

REPORT INFORMATION
  Report Type: 
  Country: None (occurrence: None)
  Receive Date: 20120127
  Receipt Date: 20120112
  Transmission Date: 20120608
  Serious: Yes (Life-Threatening, Other)
  Sender: FDA-Public Use
  Company Number: CA-COVIDIEN/TYCO HEALTHCARE/MALLINCKRODT-T201200418

PATIENT
  Sex: Male

DRUGS (11)
  1. CIPROFLOXACIN [Suspect]
     Indication: PNEUMONIA ASPIRATION
     Dosage: 400 MG Q12H
     Route: 042
  2. MORPHINE [Suspect]
     Indication: PAIN
     Dosage: 5-10 MG ORAL Q3H PRN (9 DOSES)
     Route: 048
  3. MORPHINE [Suspect]
     Dosage: 5-10 MG SUBCUTANEOUS Q3H PRN (2 DOSES)
     Route: 058
  4. ACETAMINOPHEN AND CODEINE PHOSPHATE [Suspect]
     Dosage: 325/30 MG 1 OR 2 TABLETS Q4 PRN (3 DOSES OF 2 TABS)
     Route: 048
  5. METHADOSE [Suspect]
     Indication: DRUG ABUSER
     Dosage: 50 MG, QD
     Route: 048
  6. CLINDAMYCIN [Suspect]
     Indication: PNEUMONIA ASPIRATION
     Dosage: 600 MG Q8H
     Route: 042
  7. DALTEPARIN SODIUM [Concomitant]
     Dosage: 5000 UNITS, QD
     Route: 058
  8. THIAMINE HCL [Concomitant]
     Dosage: 100 MG, QD
     Route: 048
  9. MORPHINE [Suspect]
     Dosage: 2 MG Q1H PRN (4 DOSES)
     Route: 042
  10. METHOTRIMEPRAZINE                  /00038601/ [Suspect]
     Dosage: 10-15 MG AT BEDTIME AS NEEDED (4 DOSES TOTAL)
     Route: 048
  11. FOLIC ACID [Concomitant]
     Dosage: 5 MG, QD
     Route: 048

REACTIONS (9)
  - SOMNOLENCE [None]
  - RESPIRATORY FAILURE [None]
  - RESPIRATORY DEPRESSION [None]
  - MIOSIS [None]
  - DEPRESSED LEVEL OF CONSCIOUSNESS [None]
  - PNEUMONIA ASPIRATION [None]
  - DRUG INTERACTION [None]
  - TOXICITY TO VARIOUS AGENTS [None]
  - ATELECTASIS [None]
